FAERS Safety Report 8313895-6 (Version None)
Quarter: 2012Q2

REPORT INFORMATION
  Report Type: 
  Country: None (occurrence: None)
  Receive Date: 20120426
  Receipt Date: 20120426
  Transmission Date: 20120825
  Serious: Yes (Hospitalization)
  Sender: FDA-Public Use
  Company Number: None

PATIENT
  Age: 89 Year
  Sex: Female
  Weight: 90.718 kg

DRUGS (1)
  1. TRAMADOL HCL [Suspect]
     Indication: ARTHRALGIA
     Dosage: BID
     Dates: start: 20120414, end: 20120422

REACTIONS (4)
  - FALL [None]
  - HALLUCINATION, AUDITORY [None]
  - DIZZINESS [None]
  - CERVICAL VERTEBRAL FRACTURE [None]
